FAERS Safety Report 5136335-7 (Version None)
Quarter: 2006Q4

REPORT INFORMATION
  Report Type: 
  Country: None (occurrence: None)
  Receive Date: 20061027
  Receipt Date: 20061023
  Transmission Date: 20070319
  Serious: Yes (Other)
  Sender: FDA-Public Use
  Company Number: 2006AP05040

PATIENT
  Age: 59 Year
  Sex: Male

DRUGS (7)
  1. LOSEC [Suspect]
     Route: 048
  2. LIPITOR [Concomitant]
  3. IRBESARTAN [Concomitant]
  4. FUROSEMIDE [Concomitant]
  5. TELMISARTAN [Concomitant]
  6. MOTILIUM [Concomitant]
  7. DIAMICRON [Concomitant]

REACTIONS (1)
  - HYPOMAGNESAEMIA [None]
